FAERS Safety Report 13407110 (Version 1)
Quarter: 2017Q2

REPORT INFORMATION
  Report Type: Report from Study
  Country: MX (occurrence: MX)
  Receive Date: 20170405
  Receipt Date: 20170405
  Transmission Date: 20170830
  Serious: Yes (Hospitalization, Other)
  Sender: FDA-Public Use
  Company Number: PHHY2017MX050959

PATIENT
  Sex: Female

DRUGS (1)
  1. TASIGNA [Suspect]
     Active Substance: NILOTINIB
     Indication: PRODUCT USED FOR UNKNOWN INDICATION
     Dosage: 800 MG, QD
     Route: 048
     Dates: end: 20160315

REACTIONS (12)
  - General physical condition abnormal [Recovering/Resolving]
  - Pyrexia [Recovering/Resolving]
  - Leukopenia [Recovering/Resolving]
  - Abdominal pain [Recovering/Resolving]
  - Petechiae [Recovering/Resolving]
  - Contusion [Recovering/Resolving]
  - Proctalgia [Recovering/Resolving]
  - Dyspnoea exertional [Recovering/Resolving]
  - Anal abscess [Recovering/Resolving]
  - Fatigue [Recovering/Resolving]
  - Pancytopenia [Recovering/Resolving]
  - Pallor [Recovering/Resolving]
